FAERS Safety Report 24036521 (Version 2)
Quarter: 2024Q3

REPORT INFORMATION
  Report Type: Report from Study
  Country: US (occurrence: US)
  Receive Date: 20240701
  Receipt Date: 20240920
  Transmission Date: 20241017
  Serious: Yes (Other)
  Sender: MALLINCKRODT
  Company Number: US-MALLINCKRODT-MNK202403997

PATIENT
  Sex: Female

DRUGS (5)
  1. CORTICOTROPIN [Suspect]
     Active Substance: CORTICOTROPIN
     Indication: Systemic lupus erythematosus
     Dosage: 80 UNITS
     Route: 058
     Dates: start: 20210805
  2. CORTICOTROPIN [Suspect]
     Active Substance: CORTICOTROPIN
     Dosage: UNKNOWN (RESTARTED)
     Dates: start: 20240906
  3. PREDNISONE [Concomitant]
     Active Substance: PREDNISONE
     Dosage: UNK
  4. SAPHNELO [Concomitant]
     Active Substance: ANIFROLUMAB-FNIA
     Dosage: UNK
     Route: 042
  5. MYFORTIC [Concomitant]
     Active Substance: MYCOPHENOLATE SODIUM
     Dosage: UNK

REACTIONS (6)
  - Diabetes mellitus [Unknown]
  - Menopause [Not Recovered/Not Resolved]
  - Menstrual disorder [Not Recovered/Not Resolved]
  - Loss of libido [Unknown]
  - Hormone level abnormal [Not Recovered/Not Resolved]
  - Hypertension [Not Recovered/Not Resolved]
